FAERS Safety Report 19415271 (Version 1)
Quarter: 2021Q2

REPORT INFORMATION
  Report Type: Spontaneous
  Country: US (occurrence: US)
  Receive Date: 20210614
  Receipt Date: 20210614
  Transmission Date: 20210717
  Serious: No
  Sender: FDA-Public Use
  Company Number: US-GALDERMA-US19071844

PATIENT
  Sex: Male

DRUGS (1)
  1. DESONIDE (DESONIDE) 0.05% [Suspect]
     Active Substance: DESONIDE
     Indication: PRODUCT USED FOR UNKNOWN INDICATION
     Dosage: 0.05%
     Route: 061

REACTIONS (2)
  - Skin burning sensation [Unknown]
  - Rash [Unknown]
